FAERS Safety Report 4781377-4 (Version None)
Quarter: 2005Q3

REPORT INFORMATION
  Report Type: 
  Country: None (occurrence: None)
  Receive Date: 20050914
  Receipt Date: 20050109
  Transmission Date: 20060218
  Serious: Yes (Hospitalization)
  Sender: FDA-Public Use
  Company Number: 163-20785-05010176

PATIENT
  Age: 25 Year
  Sex: Female
  Weight: 61.6892 kg

DRUGS (10)
  1. THALOMID [Suspect]
     Indication: BRAIN NEOPLASM
     Dosage: 100-200MG, DAILY, ORAL
     Route: 048
     Dates: start: 20041227, end: 20050214
  2. CELEBREX [Concomitant]
  3. TEMODAR [Concomitant]
  4. KYTRIL [Concomitant]
  5. DILANTIN [Concomitant]
  6. RADIATION THERAPY [Concomitant]
  7. DECADRON [Concomitant]
  8. VICODIN [Concomitant]
  9. XANAX [Concomitant]
  10. FLUCONAZOLE [Concomitant]

REACTIONS (4)
  - CONDITION AGGRAVATED [None]
  - CONVULSION [None]
  - MUSCLE TWITCHING [None]
  - NAUSEA [None]
